FAERS Safety Report 16964911 (Version 3)
Quarter: 2019Q4

REPORT INFORMATION
  Report Type: Spontaneous
  Country: BR (occurrence: BR)
  Receive Date: 20191028
  Receipt Date: 20191205
  Transmission Date: 20200122
  Serious: Yes (Hospitalization, Other)
  Sender: FDA-Public Use
  Company Number: BR-BIOGEN-2019BI00792394

PATIENT
  Age: 4 Year
  Sex: Male

DRUGS (1)
  1. SPINRAZA [Suspect]
     Active Substance: NUSINERSEN
     Indication: SPINAL MUSCULAR ATROPHY
     Route: 037
     Dates: start: 20190327

REACTIONS (9)
  - Pyrexia [Recovered/Resolved]
  - Atelectasis [Recovered/Resolved]
  - C-reactive protein increased [Recovered/Resolved]
  - Agitation [Unknown]
  - Pneumonia [Unknown]
  - Dyspnoea [Unknown]
  - Increased bronchial secretion [Not Recovered/Not Resolved]
  - Respiratory distress [Recovered/Resolved]
  - Dyspnoea [Recovered/Resolved]

NARRATIVE: CASE EVENT DATE: 2019
